FAERS Safety Report 5273586-5 (Version None)
Quarter: 2007Q1

REPORT INFORMATION
  Report Type: 
  Country: None (occurrence: None)
  Receive Date: 20070321
  Receipt Date: 20070321
  Transmission Date: 20070707
  Serious: Yes (Hospitalization, Other)
  Sender: FDA-Public Use
  Company Number: None

PATIENT
  Sex: Female
  Weight: 52.1637 kg

DRUGS (1)
  1. ZYVOX [Suspect]
     Indication: ENTEROCOCCAL INFECTION
     Dosage: 600MG  Q 12 HR PO
     Route: 048
     Dates: start: 20061106, end: 20061114

REACTIONS (4)
  - DIARRHOEA [None]
  - MALAISE [None]
  - PYREXIA [None]
  - VOMITING [None]
